FAERS Safety Report 8599400 (Version 4)
Quarter: 2012Q4

REPORT INFORMATION
  Report Type: Report from Study
  Country: JP (occurrence: JP)
  Receive Date: 20120605
  Receipt Date: 20120917
  Transmission Date: 20130627
  Serious: Yes (Hospitalization, Other)
  Sender: FDA-Public Use
  Company Number: JP-ROCHE-1029600

PATIENT
  Age: 53 None
  Sex: Male

DRUGS (29)
  1. ROACTEMRA [Suspect]
     Indication: RHEUMATOID ARTHRITIS
     Route: 041
     Dates: start: 20071225, end: 20090105
  2. ROACTEMRA [Suspect]
     Indication: RHEUMATOID ARTHRITIS
     Route: 041
     Dates: start: 20090223, end: 20090223
  3. ROACTEMRA [Suspect]
     Indication: RHEUMATOID ARTHRITIS
     Route: 041
     Dates: start: 20090323, end: 20100128
  4. ROACTEMRA [Suspect]
     Indication: RHEUMATOID ARTHRITIS
     Dosage: Dosage is uncertain.
     Route: 041
     Dates: start: 20100318, end: 20100513
  5. PREDNISOLONE [Suspect]
     Indication: RHEUMATOID ARTHRITIS
     Route: 048
     Dates: end: 20080703
  6. PREDNISOLONE [Suspect]
     Indication: RHEUMATOID ARTHRITIS
     Route: 048
     Dates: start: 20080704, end: 20090114
  7. PREDNISOLONE [Suspect]
     Indication: RHEUMATOID ARTHRITIS
     Route: 048
     Dates: start: 20090115
  8. PREDNISOLONE [Suspect]
     Indication: RHEUMATOID ARTHRITIS
     Route: 048
  9. RHEUMATREX [Concomitant]
     Indication: RHEUMATOID ARTHRITIS
     Dosage: Three times a week
     Route: 048
     Dates: start: 20080606, end: 20080827
  10. RHEUMATREX [Concomitant]
     Indication: RHEUMATOID ARTHRITIS
     Dosage: Three times a week
     Route: 048
     Dates: start: 20080828
  11. WARFARIN [Concomitant]
     Indication: DEEP VEIN THROMBOSIS
     Route: 048
  12. PARIET [Concomitant]
     Indication: PROPHYLAXIS
     Route: 048
  13. PARIET [Concomitant]
     Indication: PROPHYLAXIS
     Route: 048
  14. CARDENALIN [Concomitant]
     Indication: HYPERTENSION
     Route: 048
  15. TOFRANIL [Concomitant]
     Route: 048
  16. METHYCOBAL [Concomitant]
     Indication: HYPOAESTHESIA
     Route: 048
  17. BASEN [Concomitant]
     Indication: DIABETES MELLITUS
     Route: 048
  18. AMARYL [Concomitant]
     Indication: DIABETES MELLITUS
     Route: 048
  19. VOLTAREN SR [Concomitant]
     Indication: RHEUMATOID ARTHRITIS
     Route: 048
  20. MICARDIS [Concomitant]
     Indication: HYPERTENSION
     Route: 048
  21. GASLON N [Concomitant]
     Indication: PROPHYLAXIS
     Route: 048
  22. KLARICID [Concomitant]
     Indication: BRONCHITIS CHRONIC
     Route: 048
  23. BONALON [Concomitant]
     Indication: PROPHYLAXIS
     Route: 048
  24. BONALON [Concomitant]
     Indication: PROPHYLAXIS
     Route: 048
  25. NORVASC [Concomitant]
     Route: 048
  26. HYPEN [Concomitant]
     Route: 048
  27. ALFAROL [Concomitant]
     Route: 048
  28. MAGNESIUM OXIDE [Concomitant]
     Route: 048
  29. RISPERDAL [Concomitant]
     Route: 048

REACTIONS (2)
  - Nasopharyngitis [Recovered/Resolved]
  - Rib fracture [Recovered/Resolved]
